FAERS Safety Report 5523647-8 (Version None)
Quarter: 2007Q4

REPORT INFORMATION
  Report Type: 
  Country: None (occurrence: None)
  Receive Date: 20071121
  Receipt Date: 20071114
  Transmission Date: 20080405
  Serious: Yes (Life-Threatening, Hospitalization, Disabling)
  Sender: FDA-Public Use
  Company Number: US-GENENTECH-250049

PATIENT
  Sex: Female
  Weight: 86.36 kg

DRUGS (16)
  1. EFALIZUMAB [Suspect]
     Indication: PSORIASIS
     Dosage: 1 MG, 1/WEEK
     Route: 058
     Dates: start: 20041119
  2. METHOTREXATE [Concomitant]
     Indication: PSORIASIS
     Dosage: 2.5 MG, UNK
     Route: 048
     Dates: start: 20040319
  3. FOLIC ACID [Concomitant]
     Indication: ANAEMIA
     Dosage: 1 MG, UNK
     Route: 048
     Dates: start: 20051222
  4. FOLIC ACID [Concomitant]
     Dosage: 800 MG, QD
     Route: 048
     Dates: start: 20060702
  5. METOCLOPRAMIDE [Concomitant]
     Indication: NAUSEA
     Dosage: 10 MG, PRN
     Route: 048
     Dates: start: 20060101
  6. MORPHINE SULFATE [Concomitant]
     Indication: BACK PAIN
     Dosage: 60 MG, TID
     Route: 048
     Dates: start: 20060101
  7. OMEPRAZOLE [Concomitant]
     Indication: GASTROOESOPHAGEAL REFLUX DISEASE
     Dosage: 20 MG, QD
     Route: 048
     Dates: start: 20060801
  8. TRAZODONE HCL [Concomitant]
     Indication: DEPRESSION
     Dosage: 300 MG, UNK
     Route: 048
     Dates: start: 20060801
  9. EFFEXOR XR [Concomitant]
     Indication: DEPRESSION
     Dosage: 300 MG, QAM
     Route: 048
     Dates: start: 20060801
  10. EFFEXOR XR [Concomitant]
     Dosage: 150 MG, BID
     Route: 048
     Dates: start: 20060801
  11. FERROUS SULFATE TAB [Concomitant]
     Indication: IRON DEFICIENCY
     Dosage: 325 MG, QD
     Route: 048
     Dates: start: 20060901
  12. POTASSIUM CHLORIDE [Concomitant]
     Indication: HYPOKALAEMIA
     Dosage: 40 MEQ, QD
     Route: 048
     Dates: start: 20060907
  13. LACTULOSE [Concomitant]
     Indication: CONSTIPATION
     Dosage: 30 MG, QD
     Route: 048
     Dates: start: 20060907
  14. ZEMPLAR [Concomitant]
     Indication: MINERAL SUPPLEMENTATION
     Dosage: 1 MG, QD
     Route: 048
     Dates: start: 20060101
  15. METHOCARBAMOL [Concomitant]
     Indication: MUSCLE DISORDER
     Dosage: 500 MG, BID
     Route: 048
     Dates: start: 20070201, end: 20070901
  16. SOLU-MEDROL [Concomitant]
     Indication: WHEEZING
     Dosage: UNK, UNK
     Route: 042
     Dates: start: 20070712

REACTIONS (1)
  - SYNCOPE [None]
